FAERS Safety Report 15745196 (Version 1)
Quarter: 2018Q4

REPORT INFORMATION
  Report Type: Spontaneous
  Country: US (occurrence: US)
  Receive Date: 20181220
  Receipt Date: 20181220
  Transmission Date: 20190205
  Serious: No
  Sender: FDA-Public Use
  Company Number: US-ADAMAS PHARMA, LLC-2018ADA02692

PATIENT
  Age: 70 Year
  Sex: Female
  Weight: 59.41 kg

DRUGS (13)
  1. GOCOVRI [Suspect]
     Active Substance: AMANTADINE
     Indication: DYSKINESIA
     Dosage: 137 MG, 1X/DAY AT BEDTIME
     Route: 048
     Dates: start: 201806, end: 2018
  2. LEXAPRO [Concomitant]
     Active Substance: ESCITALOPRAM OXALATE
  3. VITAMIN D [Concomitant]
     Active Substance: CHOLECALCIFEROL
  4. FISH OIL [Concomitant]
     Active Substance: FISH OIL
  5. GOCOVRI [Suspect]
     Active Substance: AMANTADINE
     Dosage: UNK INCREASED DOSE AT BEDTIME
     Route: 048
     Dates: start: 2018
  6. VASOTEC [Concomitant]
     Active Substance: ENALAPRIL MALEATE
  7. NEUPRO [Concomitant]
     Active Substance: ROTIGOTINE
  8. SINEMET [Concomitant]
     Active Substance: CARBIDOPA\LEVODOPA
  9. SINEMET CR [Concomitant]
     Active Substance: CARBIDOPA\LEVODOPA
  10. TOPROL XL [Concomitant]
     Active Substance: METOPROLOL SUCCINATE
  11. MULTIVITAMIN [Concomitant]
     Active Substance: VITAMINS
  12. GABAPENTIN. [Concomitant]
     Active Substance: GABAPENTIN
  13. SYNTHROID [Concomitant]
     Active Substance: LEVOTHYROXINE SODIUM

REACTIONS (1)
  - Skin discolouration [Not Recovered/Not Resolved]

NARRATIVE: CASE EVENT DATE: 20180918
